FAERS Safety Report 24916821 (Version 2)
Quarter: 2025Q1

REPORT INFORMATION
  Report Type: Report from Study
  Country: CA (occurrence: CA)
  Receive Date: 20250203
  Receipt Date: 20250210
  Transmission Date: 20250409
  Serious: Yes (Other)
  Sender: TAKEDA
  Company Number: CA-TAKEDA-2022TUS097596

PATIENT
  Age: 22 Year
  Sex: Female

DRUGS (6)
  1. VEDOLIZUMAB [Suspect]
     Active Substance: VEDOLIZUMAB
     Indication: Colitis ulcerative
  2. VEDOLIZUMAB [Suspect]
     Active Substance: VEDOLIZUMAB
  3. VEDOLIZUMAB [Suspect]
     Active Substance: VEDOLIZUMAB
  4. VEDOLIZUMAB [Suspect]
     Active Substance: VEDOLIZUMAB
     Dosage: 300 MILLIGRAM, Q4WEEKS
     Dates: start: 20250206
  5. PREDNISONE [Concomitant]
     Active Substance: PREDNISONE
  6. PENTASA [Concomitant]
     Active Substance: MESALAMINE
     Dosage: 1 GRAM, QD
     Dates: start: 2019

REACTIONS (4)
  - Colitis ulcerative [Recovering/Resolving]
  - Anxiety [Unknown]
  - Defaecation urgency [Unknown]
  - Off label use [Unknown]

NARRATIVE: CASE EVENT DATE: 20250206
